FAERS Safety Report 23695347 (Version 1)
Quarter: 2024Q2

REPORT INFORMATION
  Report Type: Spontaneous
  Country: US (occurrence: US)
  Receive Date: 20240402
  Receipt Date: 20240402
  Transmission Date: 20240716
  Serious: No
  Sender: FDA-Public Use
  Company Number: US-JNJFOC-20240360208

PATIENT

DRUGS (2)
  1. ROGAINE [Suspect]
     Active Substance: MINOXIDIL
     Indication: Hair growth abnormal
     Dosage: ONCE DAILY UNTIL DESIRED GROWTH
     Route: 061
  2. ROGAINE [Suspect]
     Active Substance: MINOXIDIL
     Dosage: CUT BACK TO 2 TO 3 TIMES A WEEK FOR MAINTENANCE.
     Route: 061

REACTIONS (3)
  - Product use in unapproved indication [Unknown]
  - Product administered at inappropriate site [Unknown]
  - Therapeutic response unexpected [Unknown]
